FAERS Safety Report 23578879 (Version 2)
Quarter: 2024Q1

REPORT INFORMATION
  Report Type: Spontaneous
  Country: NO (occurrence: NO)
  Receive Date: 20240229
  Receipt Date: 20240325
  Transmission Date: 20240410
  Serious: Yes (Death, Other)
  Sender: FDA-Public Use
  Company Number: NO-TAKEDA-2024TUS017813

PATIENT
  Sex: Male
  Weight: 85 kg

DRUGS (4)
  1. TEDUGLUTIDE [Suspect]
     Active Substance: TEDUGLUTIDE
     Indication: Short-bowel syndrome
     Dosage: 0.42 MILLILITER
     Route: 065
     Dates: start: 2023, end: 20230911
  2. TEDUGLUTIDE [Suspect]
     Active Substance: TEDUGLUTIDE
     Indication: Short-bowel syndrome
     Dosage: 0.42 MILLILITER
     Route: 065
     Dates: start: 2023, end: 20230911
  3. TEDUGLUTIDE [Suspect]
     Active Substance: TEDUGLUTIDE
     Indication: Short-bowel syndrome
     Dosage: 0.42 MILLILITER
     Route: 065
     Dates: start: 2023, end: 20230911
  4. TEDUGLUTIDE [Suspect]
     Active Substance: TEDUGLUTIDE
     Indication: Short-bowel syndrome
     Dosage: 0.42 MILLILITER
     Route: 065
     Dates: start: 2023, end: 20230911

REACTIONS (1)
  - Renal cancer metastatic [Fatal]
